FAERS Safety Report 15593830 (Version 1)
Quarter: 2018Q4

REPORT INFORMATION
  Report Type: Spontaneous
  Country: SA (occurrence: SA)
  Receive Date: 20181106
  Receipt Date: 20181106
  Transmission Date: 20190205
  Serious: Yes (Hospitalization)
  Sender: FDA-Public Use
  Company Number: SA-MYLANLABS-2018M1083661

PATIENT
  Age: 24 Year
  Sex: Female

DRUGS (4)
  1. FENTANYL. [Suspect]
     Active Substance: FENTANYL
     Indication: EPIDURAL ANALGESIA
     Dosage: SCHEDULED FOR A TOTAL OF 700 MICROG; FORMULATION: INFUSION
     Route: 008
  2. BUPIVACAINE. [Concomitant]
     Active Substance: BUPIVACAINE
     Indication: EPIDURAL ANALGESIA
     Dosage: 115 ML; FORMULATION: INFUSION
     Route: 008
  3. LIDOCAINE. [Concomitant]
     Active Substance: LIDOCAINE
     Indication: EPIDURAL ANALGESIA
     Dosage: 40 ML; FORMULATION: INFUSION
     Route: 008
  4. PROSTIN E2 [Concomitant]
     Active Substance: DINOPROSTONE
     Indication: LABOUR INDUCTION
     Dosage: 1 MG; COMPLETED 3 CYCLES
     Route: 065

REACTIONS (2)
  - Myoclonus [Recovered/Resolved]
  - Maternal exposure during delivery [Recovered/Resolved]
